FAERS Safety Report 8959273 (Version 2)
Quarter: 2015Q1

REPORT INFORMATION
  Report Type: Report from Study
  Country: ES (occurrence: ES)
  Receive Date: 20121212
  Receipt Date: 20150129
  Transmission Date: 20150721
  Serious: Yes (Hospitalization)
  Sender: FDA-Public Use
  Company Number: ES-ELI_LILLY_AND_COMPANY-ES201211009421

PATIENT
  Age: 80 Year
  Sex: Female

DRUGS (2)
  1. TERIPARATIDE [Suspect]
     Active Substance: TERIPARATIDE
     Dosage: 20 UG, QD
     Route: 058
  2. TERIPARATIDE [Suspect]
     Active Substance: TERIPARATIDE
     Indication: OSTEOPOROSIS
     Dosage: 20 UG, QD
     Route: 058
     Dates: start: 20121015

REACTIONS (7)
  - Medication error [Unknown]
  - Injection site haematoma [Unknown]
  - Gastroenteritis [Unknown]
  - Weight decreased [Unknown]
  - Pain [Not Recovered/Not Resolved]
  - Drug dose omission [Unknown]
  - Device related infection [Unknown]

NARRATIVE: CASE EVENT DATE: 20121121
